FAERS Safety Report 7589776-2 (Version None)
Quarter: 2011Q3

REPORT INFORMATION
  Report Type: 
  Country: None (occurrence: None)
  Receive Date: 20110705
  Receipt Date: 20110620
  Transmission Date: 20111222
  Serious: Yes (Other)
  Sender: FDA-Public Use
  Company Number: GB-WATSON-2011-09768

PATIENT
  Age: 46 Year
  Sex: Male

DRUGS (6)
  1. GINSENG                            /00480901/ [Suspect]
     Indication: PRODUCT USED FOR UNKNOWN INDICATION
     Route: 048
  2. GINGER                             /01646602/ [Suspect]
     Indication: PRODUCT USED FOR UNKNOWN INDICATION
     Route: 048
  3. IBUPROFEN [Suspect]
     Indication: ANALGESIC THERAPY
     Dosage: 400 MG, UNK
     Route: 048
  4. GARLIC                             /01570501/ [Suspect]
     Indication: PRODUCT USED FOR UNKNOWN INDICATION
     Route: 048
  5. GINKGO BILOBA [Suspect]
     Indication: PRODUCT USED FOR UNKNOWN INDICATION
     Dosage: UNK
     Route: 048
  6. ACETAMINOPHEN [Suspect]
     Indication: ANALGESIC THERAPY
     Dosage: 1 G, UNK
     Route: 048

REACTIONS (2)
  - POST PROCEDURAL HAEMORRHAGE [None]
  - HERBAL INTERACTION [None]
